FAERS Safety Report 17293412 (Version 1)
Quarter: 2020Q1

REPORT INFORMATION
  Report Type: Report from Study
  Country: CN (occurrence: CN)
  Receive Date: 20200121
  Receipt Date: 20200121
  Transmission Date: 20200409
  Serious: Yes (Other)
  Sender: FDA-Public Use
  Company Number: CN-ROCHE-2522742

PATIENT

DRUGS (3)
  1. ALTEPLASE. [Suspect]
     Active Substance: ALTEPLASE
     Indication: CEREBRAL INFARCTION
     Dosage: 10%
     Route: 040
  2. ASPIRIN [ACETYLSALICYLIC ACID] [Concomitant]
     Active Substance: ASPIRIN
     Indication: CEREBRAL INFARCTION
     Route: 048
  3. ALTEPLASE. [Suspect]
     Active Substance: ALTEPLASE
     Dosage: 90%
     Route: 042

REACTIONS (1)
  - Angina pectoris [Unknown]
